FAERS Safety Report 10346787 (Version 2)
Quarter: 2014Q3

REPORT INFORMATION
  Report Type: Spontaneous
  Country: US (occurrence: US)
  Receive Date: 20140729
  Receipt Date: 20140729
  Transmission Date: 20150326
  Serious: Yes (Other)
  Sender: FDA-Public Use
  Company Number: US-AMGEN INC.-USASP2014052656

PATIENT
  Age: 63 Year
  Sex: Male
  Weight: 85.71 kg

DRUGS (24)
  1. XGEVA [Suspect]
     Active Substance: DENOSUMAB
     Indication: PRODUCT USED FOR UNKNOWN INDICATION
     Dosage: 120 MG, Q4WK
     Route: 030
     Dates: start: 20120717, end: 20140721
  2. XGEVA [Suspect]
     Active Substance: DENOSUMAB
     Route: 030
  3. XGEVA [Suspect]
     Active Substance: DENOSUMAB
     Route: 030
  4. XGEVA [Suspect]
     Active Substance: DENOSUMAB
     Route: 030
  5. XGEVA [Suspect]
     Active Substance: DENOSUMAB
     Route: 030
  6. XGEVA [Suspect]
     Active Substance: DENOSUMAB
     Route: 030
  7. XGEVA [Suspect]
     Active Substance: DENOSUMAB
     Route: 030
  8. XGEVA [Suspect]
     Active Substance: DENOSUMAB
     Route: 030
  9. XGEVA [Suspect]
     Active Substance: DENOSUMAB
     Route: 030
  10. XGEVA [Suspect]
     Active Substance: DENOSUMAB
     Route: 030
  11. XGEVA [Suspect]
     Active Substance: DENOSUMAB
     Route: 030
  12. NIASPAN [Concomitant]
     Active Substance: NIACIN
  13. LIPITOR [Concomitant]
     Active Substance: ATORVASTATIN CALCIUM
  14. ASPIRIN. [Concomitant]
     Active Substance: ASPIRIN
  15. XGEVA [Suspect]
     Active Substance: DENOSUMAB
     Route: 030
  16. XGEVA [Suspect]
     Active Substance: DENOSUMAB
     Route: 030
  17. XTANDI [Concomitant]
     Active Substance: ENZALUTAMIDE
  18. XGEVA [Suspect]
     Active Substance: DENOSUMAB
     Route: 030
  19. XGEVA [Suspect]
     Active Substance: DENOSUMAB
     Route: 030
  20. FISH OIL [Concomitant]
     Active Substance: FISH OIL
  21. EFFEXOR [Concomitant]
     Active Substance: VENLAFAXINE HYDROCHLORIDE
  22. XGEVA [Suspect]
     Active Substance: DENOSUMAB
     Route: 030
  23. XGEVA [Suspect]
     Active Substance: DENOSUMAB
     Route: 030
  24. ELIGARD [Concomitant]
     Active Substance: LEUPROLIDE ACETATE

REACTIONS (6)
  - Lumbar vertebral fracture [Unknown]
  - Spinal compression fracture [Unknown]
  - Bone density increased [Not Recovered/Not Resolved]
  - Metastases to bone [Unknown]
  - Oesophageal disorder [Unknown]
  - Spondylolisthesis [Unknown]

NARRATIVE: CASE EVENT DATE: 20140317
